FAERS Safety Report 23624481 (Version 1)
Quarter: 2024Q1

REPORT INFORMATION
  Report Type: Report from Study
  Country: US (occurrence: US)
  Receive Date: 20240313
  Receipt Date: 20240313
  Transmission Date: 20240410
  Serious: Yes (Hospitalization, Other)
  Sender: FDA-Public Use
  Company Number: US-JNJFOC-20240285229

PATIENT

DRUGS (3)
  1. TREMFYA [Suspect]
     Active Substance: GUSELKUMAB
     Indication: Product used for unknown indication
     Route: 065
     Dates: start: 20231001
  2. TREMFYA [Suspect]
     Active Substance: GUSELKUMAB
  3. TREMFYA [Suspect]
     Active Substance: GUSELKUMAB

REACTIONS (6)
  - Pneumonia [Unknown]
  - Diabetic ketoacidosis [Unknown]
  - Hospitalisation [Unknown]
  - Illness [Unknown]
  - Coronary artery occlusion [Unknown]
  - Skin disorder [Unknown]

NARRATIVE: CASE EVENT DATE: 20231101
